FAERS Safety Report 9431243 (Version 1)
Quarter: 2013Q3

REPORT INFORMATION
  Report Type: Spontaneous
  Country: RU (occurrence: RU)
  Receive Date: 20130730
  Receipt Date: 20130730
  Transmission Date: 20140515
  Serious: Yes (Other)
  Sender: FDA-Public Use
  Company Number: RU-PFIZER INC-2013216750

PATIENT
  Sex: Female

DRUGS (1)
  1. DALACIN [Suspect]
     Indication: BACTERIAL VAGINOSIS
     Dosage: UNK
     Route: 067

REACTIONS (1)
  - Candida infection [Unknown]
